FAERS Safety Report 6483543-9 (Version None)
Quarter: 2009Q4

REPORT INFORMATION
  Report Type: 
  Country: None (occurrence: None)
  Receive Date: 20091208
  Receipt Date: 20091208
  Transmission Date: 20100525
  Serious: Yes (Hospitalization)
  Sender: FDA-Public Use
  Company Number: None

PATIENT
  Age: 51 Year
  Sex: Male
  Weight: 100.7 kg

DRUGS (2)
  1. TRAMADOL HCL [Suspect]
     Indication: PAIN
     Dosage: 100 MG TID PO
     Route: 048
     Dates: start: 20090720, end: 20090815
  2. CHLORPROMAZINE [Suspect]
     Indication: MANIA
     Dosage: 25 MG EVERY DAY PO
     Route: 048
     Dates: start: 20090312, end: 20090815

REACTIONS (1)
  - CONVULSION [None]
